FAERS Safety Report 6819403-0 (Version None)
Quarter: 2010Q3

REPORT INFORMATION
  Report Type: 
  Country: None (occurrence: None)
  Receive Date: 20100707
  Receipt Date: 20100625
  Transmission Date: 20110219
  Serious: Yes (Other)
  Sender: FDA-Public Use
  Company Number: US-PFIZER INC-2010080094

PATIENT
  Age: 56 Year
  Sex: Female

DRUGS (1)
  1. GEODON [Suspect]
     Dosage: 40 MG, 2X/DAY

REACTIONS (1)
  - PARKINSONISM [None]
